FAERS Safety Report 12980310 (Version 3)
Quarter: 2017Q1

REPORT INFORMATION
  Report Type: Spontaneous
  Country: US (occurrence: US)
  Receive Date: 20161128
  Receipt Date: 20170309
  Transmission Date: 20170428
  Serious: Yes (Other)
  Sender: FDA-Public Use
  Company Number: US-ABBVIE-16K-163-1787903-00

PATIENT
  Age: 72 Year
  Sex: Female
  Weight: 99.88 kg

DRUGS (9)
  1. XELJANZ [Suspect]
     Active Substance: TOFACITINIB CITRATE
     Indication: ARTHRITIS
     Route: 048
     Dates: start: 201606, end: 20160821
  2. DULOXETINE. [Concomitant]
     Active Substance: DULOXETINE
     Dates: start: 2016
  3. HUMIRA [Suspect]
     Active Substance: ADALIMUMAB
     Indication: SPONDYLITIS
     Route: 058
     Dates: start: 201506, end: 201602
  4. XELJANZ [Suspect]
     Active Substance: TOFACITINIB CITRATE
     Route: 048
     Dates: start: 20160904
  5. LEVOTHYROXINE. [Concomitant]
     Active Substance: LEVOTHYROXINE
     Dates: start: 2016
  6. DULOXETINE. [Concomitant]
     Active Substance: DULOXETINE
     Indication: PAIN
     Dates: end: 2016
  7. LEVOTHYROXINE. [Concomitant]
     Active Substance: LEVOTHYROXINE
     Indication: HYPOTHYROIDISM
     Dates: end: 2016
  8. TRAMADOL. [Concomitant]
     Active Substance: TRAMADOL
     Dates: start: 2016
  9. TRAMADOL. [Concomitant]
     Active Substance: TRAMADOL
     Indication: PAIN
     Dates: end: 2016

REACTIONS (9)
  - Post procedural infection [Unknown]
  - Adverse drug reaction [Unknown]
  - Intraocular pressure increased [Recovering/Resolving]
  - Arthritis [Unknown]
  - Eye swelling [Recovering/Resolving]
  - Drug ineffective [Not Recovered/Not Resolved]
  - Eye infection [Unknown]
  - Cataract [Unknown]
  - Weight increased [Unknown]

NARRATIVE: CASE EVENT DATE: 2015
